FAERS Safety Report 4714921-3 (Version None)
Quarter: 2005Q3

REPORT INFORMATION
  Report Type: 
  Country: None (occurrence: None)
  Receive Date: 20050715
  Receipt Date: 20050426
  Transmission Date: 20060218
  Serious: Yes (Hospitalization)
  Sender: FDA-Public Use
  Company Number: 2005SE02516

PATIENT
  Age: 14626 Day
  Sex: Male

DRUGS (2)
  1. QUETIAPINE FUMARATE [Suspect]
     Indication: SCHIZOPHRENIA
     Route: 048
     Dates: start: 20041006
  2. QUETIAPINE FUMARATE [Suspect]
     Route: 048
     Dates: end: 20050404

REACTIONS (1)
  - SCHIZOPHRENIA [None]
